FAERS Safety Report 12554638 (Version 2)
Quarter: 2016Q3

REPORT INFORMATION
  Report Type: Spontaneous
  Country: CA (occurrence: CA)
  Receive Date: 20160713
  Receipt Date: 20160719
  Transmission Date: 20161109
  Serious: Yes (Other)
  Sender: FDA-Public Use
  Company Number: CA-GILEAD-2016-0222408

PATIENT
  Sex: Female

DRUGS (1)
  1. VIREAD [Suspect]
     Active Substance: TENOFOVIR DISOPROXIL FUMARATE
     Indication: HIV INFECTION
     Dosage: EVERY OTHER DAY
     Route: 065

REACTIONS (5)
  - Nephropathy toxic [Unknown]
  - Dialysis [Unknown]
  - Renal failure [Unknown]
  - Hyperparathyroidism [Unknown]
  - Bone disorder [Unknown]
